FAERS Safety Report 17875346 (Version 2)
Quarter: 2020Q2

REPORT INFORMATION
  Report Type: Spontaneous
  Country: US (occurrence: US)
  Receive Date: 20200609
  Receipt Date: 20200624
  Transmission Date: 20200714
  Serious: Yes (Hospitalization)
  Sender: FDA-Public Use
  Company Number: US-UNITED THERAPEUTICS-UNT-2020-004450

PATIENT
  Sex: Female
  Weight: 67.85 kg

DRUGS (7)
  1. ADEMPAS [Suspect]
     Active Substance: RIOCIGUAT
     Dosage: 2.5 MG, TID
     Route: 058
     Dates: start: 20200530
  2. REMODULIN [Suspect]
     Active Substance: TREPROSTINIL
     Dosage: 0.031 ?G/KG, CONTINUING
     Route: 058
     Dates: start: 20200403
  3. ADEMPAS [Suspect]
     Active Substance: RIOCIGUAT
     Dosage: 2 MG, TID
     Route: 065
  4. REMODULIN [Suspect]
     Active Substance: TREPROSTINIL
     Dosage: 0.021 ?G/KG, CONTINUING
     Route: 058
     Dates: start: 20200317
  5. REMODULIN [Suspect]
     Active Substance: TREPROSTINIL
     Dosage: 0.028 ?G/KG, CONTINUING
     Route: 058
  6. ADEMPAS [Suspect]
     Active Substance: RIOCIGUAT
     Indication: PRODUCT USED FOR UNKNOWN INDICATION
     Dosage: 1 MG, UNK
     Route: 065
  7. REMODULIN [Suspect]
     Active Substance: TREPROSTINIL
     Indication: PULMONARY ARTERIAL HYPERTENSION
     Dosage: 0.031 ?G/KG, CONTINUING
     Route: 058

REACTIONS (30)
  - Dyspnoea exertional [Recovered/Resolved]
  - Pain in jaw [Unknown]
  - Oral candidiasis [Not Recovered/Not Resolved]
  - Blood pressure increased [Unknown]
  - Infusion site erythema [Recovering/Resolving]
  - Contusion [Recovering/Resolving]
  - Constipation [Unknown]
  - Feeling abnormal [Unknown]
  - Flushing [Unknown]
  - Pruritus [Unknown]
  - Infusion site reaction [Unknown]
  - Blood pressure decreased [Unknown]
  - Back pain [Unknown]
  - Dizziness postural [Unknown]
  - Infusion site pain [Recovering/Resolving]
  - Diarrhoea [Recovered/Resolved]
  - Flatulence [Unknown]
  - Nausea [Recovered/Resolved]
  - Depressed mood [Unknown]
  - Fibromyalgia [Unknown]
  - Mental impairment [Unknown]
  - Head discomfort [Unknown]
  - Pain in extremity [Unknown]
  - Pain [Not Recovered/Not Resolved]
  - Headache [Recovering/Resolving]
  - Dry skin [Unknown]
  - Arthralgia [Unknown]
  - Bendopnoea [Unknown]
  - Peripheral swelling [Unknown]
  - Presyncope [Unknown]

NARRATIVE: CASE EVENT DATE: 2020
